FAERS Safety Report 17600109 (Version 1)
Quarter: 2020Q1

REPORT INFORMATION
  Report Type: Spontaneous
  Country: GB (occurrence: GB)
  Receive Date: 20200330
  Receipt Date: 20200330
  Transmission Date: 20200409
  Serious: Yes (Other)
  Sender: FDA-Public Use
  Company Number: GB-MYLANLABS-2020M1032737

PATIENT
  Age: 76 Year
  Sex: Female

DRUGS (3)
  1. XARELTO [Interacting]
     Active Substance: RIVAROXABAN
     Indication: CEREBROVASCULAR ACCIDENT
     Dosage: 20 MG
  2. LANSOPRAZOLE. [Suspect]
     Active Substance: LANSOPRAZOLE
     Indication: PRODUCT USED FOR UNKNOWN INDICATION
     Dosage: UNK
     Dates: start: 201910
  3. XARELTO [Interacting]
     Active Substance: RIVAROXABAN
     Indication: CEREBRAL THROMBOSIS

REACTIONS (4)
  - Pain [Unknown]
  - Cerebral haemorrhage [Unknown]
  - Drug interaction [Unknown]
  - Adverse drug reaction [Unknown]
